FAERS Safety Report 23957755 (Version 1)
Quarter: 2024Q2

REPORT INFORMATION
  Report Type: Report from Study
  Country: IN (occurrence: None)
  Receive Date: 20240610
  Receipt Date: 20240610
  Transmission Date: 20240716
  Serious: Yes (Life-Threatening)
  Sender: FDA-Public Use
  Company Number: 2024A133827

PATIENT
  Age: 17314 Day
  Sex: Female
  Weight: 63 kg

DRUGS (1)
  1. LYNPARZA [Suspect]
     Active Substance: OLAPARIB
     Indication: Ovarian cancer
     Route: 048
     Dates: start: 20240301

REACTIONS (2)
  - Pain in extremity [Not Recovered/Not Resolved]
  - Muscle strain [Not Recovered/Not Resolved]

NARRATIVE: CASE EVENT DATE: 20240601
